FAERS Safety Report 6410772-2 (Version None)
Quarter: 2009Q4

REPORT INFORMATION
  Report Type: 
  Country: None (occurrence: None)
  Receive Date: 20091020
  Receipt Date: 20091020
  Transmission Date: 20100525
  Serious: Yes (Death)
  Sender: FDA-Public Use
  Company Number: None

PATIENT
  Age: 36 Year
  Sex: Male
  Weight: 45 kg

DRUGS (4)
  1. LAMIVUDINE/STAVUDINE [Suspect]
     Indication: HIV INFECTION
     Dosage: UNSPECIFIED QD ORAL
     Route: 048
     Dates: start: 20081231, end: 20090818
  2. EFAVIRENZ [Suspect]
     Indication: HIV INFECTION
     Dosage: 600MG QD ORAL
     Route: 048
     Dates: start: 20081231, end: 20090818
  3. AKURIT-4 [Suspect]
     Indication: TUBERCULOSIS
     Dosage: UNSPECIFIED QD ORAL
     Route: 048
     Dates: start: 20081103, end: 20081218
  4. AKURIT [Suspect]
     Indication: TUBERCULOSIS
     Dosage: UNSPECIFIED QD ORAL
     Route: 048
     Dates: start: 20090101, end: 20090506

REACTIONS (2)
  - COMPLETED SUICIDE [None]
  - DEPRESSION SUICIDAL [None]
